FAERS Safety Report 8594558-9 (Version None)
Quarter: 2012Q3

REPORT INFORMATION
  Report Type: 
  Country: None (occurrence: None)
  Receive Date: 20120815
  Receipt Date: 20120809
  Transmission Date: 20120928
  Serious: Yes (Hospitalization, Other)
  Sender: FDA-Public Use
  Company Number: IT-ELI_LILLY_AND_COMPANY-IT201207008859

PATIENT
  Sex: Female

DRUGS (12)
  1. PANTOPRAZOLE SODIUM [Concomitant]
     Dosage: 40 MG, UNKNOWN
  2. IDROPLURIVIT [Concomitant]
     Dosage: 10 ML, UNKNOWN
  3. CYMBALTA [Suspect]
     Indication: RESTLESS LEGS SYNDROME
     Dosage: 60 MG, QD
     Route: 048
     Dates: start: 20120605, end: 20120619
  4. CALCIUM CARBONATE [Concomitant]
  5. BENERVA [Concomitant]
     Dosage: 300 MG, UNKNOWN
  6. FUROSEMIDE [Concomitant]
     Dosage: 500 MG, UNKNOWN
  7. ASPIRIN [Concomitant]
     Dosage: 100 MG, UNKNOWN
  8. EPREX [Concomitant]
     Dosage: 4000 IU, UNKNOWN
  9. SODIUM BICARBONATE [Concomitant]
     Dosage: 500 MG, UNKNOWN
  10. ALDOMET [Concomitant]
     Dosage: 2 DF, UNK
  11. FOLIC ACID [Concomitant]
     Dosage: 400 UG, UNKNOWN
  12. LEXOTAN [Concomitant]
     Dosage: 2.5 ML, UNK

REACTIONS (2)
  - LARGE INTESTINAL OBSTRUCTION [None]
  - OFF LABEL USE [None]
